FAERS Safety Report 4944144-4 (Version None)
Quarter: 2006Q1

REPORT INFORMATION
  Report Type: 
  Country: None (occurrence: None)
  Receive Date: 20060315
  Receipt Date: 20060215
  Transmission Date: 20060701
  Serious: Yes (Hospitalization)
  Sender: FDA-Public Use
  Company Number: DEWYE395515FEB06

PATIENT
  Sex: Female

DRUGS (3)
  1. ENBREL [Suspect]
     Indication: RHEUMATOID ARTHRITIS
     Dosage: UNKNOWN
     Route: 058
     Dates: start: 20051001, end: 20060101
  2. LANTAREL [Concomitant]
     Dates: start: 20050501, end: 20051001
  3. PREDNISOLONE [Concomitant]

REACTIONS (1)
  - ENCEPHALITIS [None]
